FAERS Safety Report 11495307 (Version 1)
Quarter: 2015Q3

REPORT INFORMATION
  Report Type: Report from Study
  Country: NL (occurrence: NL)
  Receive Date: 20150911
  Receipt Date: 20150911
  Transmission Date: 20151125
  Serious: Yes (Hospitalization, Other)
  Sender: FDA-Public Use
  Company Number: NL-AMGEN-NLDSL2015092428

PATIENT
  Age: 83 Year
  Sex: Female

DRUGS (5)
  1. ANASTROZOL [Concomitant]
     Active Substance: ANASTROZOLE
     Dosage: 1 MG, UNK
  2. CALCIUMCARBONAAT [Concomitant]
     Dosage: 500 MG, UNK
  3. KALIUMCHLORIDE [Concomitant]
     Dosage: 6 MG/ML, UNK
     Dates: start: 20150907
  4. DALTEPARIN [Concomitant]
     Active Substance: DALTEPARIN
     Dosage: UNK
     Dates: start: 20150903
  5. XGEVA [Suspect]
     Active Substance: DENOSUMAB
     Indication: PRODUCT USED FOR UNKNOWN INDICATION
     Dosage: 120 MG, Q4WK
     Route: 058
     Dates: start: 20130618

REACTIONS (1)
  - Enterocolitis [Not Recovered/Not Resolved]

NARRATIVE: CASE EVENT DATE: 20150815
